FAERS Safety Report 20963863 (Version 2)
Quarter: 2022Q2

REPORT INFORMATION
  Report Type: Spontaneous
  Country: IT (occurrence: IT)
  Receive Date: 20220615
  Receipt Date: 20220627
  Transmission Date: 20220720
  Serious: Yes (Other)
  Sender: FDA-Public Use
  Company Number: IT-BAXTER-2022BAX011551

PATIENT
  Age: 50 Year
  Sex: Female

DRUGS (7)
  1. SEVOFLURANE [Suspect]
     Active Substance: SEVOFLURANE
     Indication: Anaesthesia
     Dosage: UNK
     Route: 055
  2. PROPOFOL [Suspect]
     Active Substance: PROPOFOL
     Indication: Anaesthesia
     Dosage: INFUSION
     Route: 041
  3. MIDAZOLAM [Suspect]
     Active Substance: MIDAZOLAM
     Indication: Anaesthesia
     Dosage: UNK
     Route: 065
  4. FENTANYL [Suspect]
     Active Substance: FENTANYL
     Indication: Anaesthesia
     Dosage: BOLUS
     Route: 040
  5. OCTREOTIDE [Suspect]
     Active Substance: OCTREOTIDE
     Dosage: UNK
     Route: 065
  6. SUFENTANIL [Suspect]
     Active Substance: SUFENTANIL
     Indication: Anaesthesia
     Dosage: UNK
     Route: 065
  7. ROCURONIUM BROMIDE [Suspect]
     Active Substance: ROCURONIUM BROMIDE
     Indication: Anaesthesia
     Route: 065

REACTIONS (9)
  - Haemodynamic instability [Unknown]
  - Hyperdynamic left ventricle [Unknown]
  - Vasoplegia syndrome [Unknown]
  - Anuria [Unknown]
  - Carcinoid crisis [Unknown]
  - Contraindicated product administered [Unknown]
  - Right ventricular dysfunction [Unknown]
  - Blood lactic acid increased [Unknown]
  - Hypotension [Unknown]
